FAERS Safety Report 21227829 (Version 1)
Quarter: 2022Q3

REPORT INFORMATION
  Report Type: Spontaneous
  Country: US (occurrence: US)
  Receive Date: 20220818
  Receipt Date: 20220818
  Transmission Date: 20221027
  Serious: No
  Sender: FDA-Public Use
  Company Number: US-TAKEDA-2022TUS056199

PATIENT
  Sex: Female
  Weight: 73 kg

DRUGS (1)
  1. VYVANSE [Suspect]
     Active Substance: LISDEXAMFETAMINE DIMESYLATE
     Indication: Attention deficit hyperactivity disorder
     Dosage: 15 MILLIGRAM, QD
     Route: 065

REACTIONS (7)
  - Product administration error [Unknown]
  - Insomnia [Unknown]
  - Anxiety [Unknown]
  - Irritability [Unknown]
  - Therapy interrupted [Unknown]
  - Somnolence [Unknown]
  - Product storage error [Unknown]
